FAERS Safety Report 8913475 (Version 1)
Quarter: 2012Q4

REPORT INFORMATION
  Report Type: Spontaneous
  Country: DK (occurrence: None)
  Receive Date: 20121113
  Receipt Date: 20121113
  Transmission Date: 20130627
  Serious: Yes (Other)
  Sender: FDA-Public Use
  Company Number: 2012MA013060

PATIENT
  Sex: Male

DRUGS (2)
  1. RAMIPRIL [Suspect]
     Indication: BLOOD PRESSURE
     Route: 048
  2. RAMIPRIL [Suspect]
     Indication: HEART DISORDER
     Route: 048

REACTIONS (3)
  - Thrombophlebitis [None]
  - Condition aggravated [None]
  - Varicose vein [None]
